FAERS Safety Report 25475248 (Version 1)
Quarter: 2025Q2

REPORT INFORMATION
  Report Type: Spontaneous
  Country: AU (occurrence: AU)
  Receive Date: 20250624
  Receipt Date: 20250624
  Transmission Date: 20250716
  Serious: Yes (Death, Hospitalization)
  Sender: GALPHARM INTERNATIONAL
  Company Number: AU-PERRIGO-25AU007479

PATIENT
  Age: 47 Year
  Sex: Female

DRUGS (30)
  1. ACETAMINOPHEN [Suspect]
     Active Substance: ACETAMINOPHEN
     Indication: Mental disorder
     Route: 065
     Dates: start: 202108
  2. ACETAMINOPHEN [Suspect]
     Active Substance: ACETAMINOPHEN
     Indication: Hypomania
  3. ACETAMINOPHEN [Suspect]
     Active Substance: ACETAMINOPHEN
     Indication: Psychotic disorder
  4. DIAZEPAM [Suspect]
     Active Substance: DIAZEPAM
     Indication: Mental disorder
     Route: 065
  5. DIAZEPAM [Suspect]
     Active Substance: DIAZEPAM
     Indication: Hypomania
  6. DIAZEPAM [Suspect]
     Active Substance: DIAZEPAM
     Indication: Psychotic disorder
  7. OLANZAPINE [Suspect]
     Active Substance: OLANZAPINE
     Indication: Mental disorder
     Route: 065
  8. OLANZAPINE [Suspect]
     Active Substance: OLANZAPINE
     Indication: Hypomania
  9. OLANZAPINE [Suspect]
     Active Substance: OLANZAPINE
     Indication: Psychotic disorder
  10. MIDAZOLAM [Suspect]
     Active Substance: MIDAZOLAM
     Indication: Mental disorder
     Route: 065
  11. MIDAZOLAM [Suspect]
     Active Substance: MIDAZOLAM
     Indication: Hypomania
  12. MIDAZOLAM [Suspect]
     Active Substance: MIDAZOLAM
     Indication: Psychotic disorder
  13. PANADOL [Suspect]
     Active Substance: ACETAMINOPHEN
     Indication: Mental disorder
     Route: 065
  14. PANADOL [Suspect]
     Active Substance: ACETAMINOPHEN
     Indication: Hypomania
  15. PANADOL [Suspect]
     Active Substance: ACETAMINOPHEN
     Indication: Psychotic disorder
  16. HALOPERIDOL [Suspect]
     Active Substance: HALOPERIDOL
     Indication: Mental disorder
     Route: 042
  17. HALOPERIDOL [Suspect]
     Active Substance: HALOPERIDOL
     Indication: Hypomania
  18. HALOPERIDOL [Suspect]
     Active Substance: HALOPERIDOL
     Indication: Psychotic disorder
  19. PROPOFOL [Suspect]
     Active Substance: PROPOFOL
     Indication: Mental disorder
     Route: 065
  20. PROPOFOL [Suspect]
     Active Substance: PROPOFOL
     Indication: Hypomania
  21. PROPOFOL [Suspect]
     Active Substance: PROPOFOL
     Indication: Psychotic disorder
  22. KETAMINE [Suspect]
     Active Substance: KETAMINE
     Indication: Mental disorder
  23. KETAMINE [Suspect]
     Active Substance: KETAMINE
     Indication: Hypomania
  24. KETAMINE [Suspect]
     Active Substance: KETAMINE
     Indication: Psychotic disorder
  25. ARIPIPRAZOLE [Suspect]
     Active Substance: ARIPIPRAZOLE
     Indication: Mental disorder
  26. ARIPIPRAZOLE [Suspect]
     Active Substance: ARIPIPRAZOLE
     Indication: Hypomania
  27. ARIPIPRAZOLE [Suspect]
     Active Substance: ARIPIPRAZOLE
     Indication: Psychotic disorder
  28. ZUCLOPENTHIXOL [Suspect]
     Active Substance: ZUCLOPENTHIXOL
     Indication: Mental disorder
  29. ZUCLOPENTHIXOL [Suspect]
     Active Substance: ZUCLOPENTHIXOL
     Indication: Hypomania
  30. ZUCLOPENTHIXOL [Suspect]
     Active Substance: ZUCLOPENTHIXOL
     Indication: Psychotic disorder

REACTIONS (4)
  - Acute respiratory failure [Fatal]
  - Toxicity to various agents [Fatal]
  - Agitation [Unknown]
  - Fall [Unknown]

NARRATIVE: CASE EVENT DATE: 20210801
